FAERS Safety Report 11646867 (Version 1)
Quarter: 2015Q4

REPORT INFORMATION
  Report Type: Spontaneous
  Country: US (occurrence: US)
  Receive Date: 20151020
  Receipt Date: 20151020
  Transmission Date: 20160304
  Serious: No
  Sender: FDA-Public Use
  Company Number: US-BAUSCH-BL-2015-017010

PATIENT
  Age: 65 Year
  Sex: Female

DRUGS (1)
  1. LOTEMAX [Suspect]
     Active Substance: LOTEPREDNOL ETABONATE
     Indication: EYE DISORDER
     Dosage: INSTILL 1 DROP IN THE RIGHT EYE 4 TIMES DAILY FOR 10 DAYS THEN REDUCE TO 1 DROP DAILY FOR 10 DAYS
     Route: 047
     Dates: start: 20150617, end: 20150619

REACTIONS (1)
  - Burning sensation [Recovered/Resolved]

NARRATIVE: CASE EVENT DATE: 20150617
